FAERS Safety Report 8846906 (Version 2)
Quarter: 2013Q1

REPORT INFORMATION
  Report Type: Spontaneous
  Country: US (occurrence: None)
  Receive Date: 20121016
  Receipt Date: 20121031
  Transmission Date: 20140127
  Serious: Yes (Life-Threatening, Hospitalization, Other)
  Sender: FDA-Public Use
  Company Number: NSR_00680_2012

PATIENT
  Age: 47 Year
  Sex: Male

DRUGS (1)
  1. TRAMADOL [Suspect]
     Indication: PRODUCT USED FOR UNKNOWN INDICATION
     Dosage: ALL TABLETS CONTAINED IN THE BOTTLE (NOT THE PRESCRIBED DOSE)

REACTIONS (9)
  - Sinus tachycardia [None]
  - Mental status changes [None]
  - Hypoventilation [None]
  - Bundle branch block right [None]
  - Electrocardiogram ST segment elevation [None]
  - Electrocardiogram abnormal [None]
  - Troponin I increased [None]
  - Intentional drug misuse [None]
  - Drug level increased [None]
